FAERS Safety Report 5882886-7 (Version None)
Quarter: 2008Q3

REPORT INFORMATION
  Report Type: 
  Country: None (occurrence: None)
  Receive Date: 20080913
  Receipt Date: 20080820
  Transmission Date: 20090109
  Serious: No
  Sender: FDA-Public Use
  Company Number: US-ABBOTT-08P-163-0471847-00

PATIENT
  Sex: Male
  Weight: 83.99 kg

DRUGS (8)
  1. HUMIRA [Suspect]
     Indication: PSORIATIC ARTHROPATHY
     Route: 050
     Dates: start: 20080710
  2. HUMIRA [Suspect]
     Indication: PSORIASIS
  3. BLOOD PRESSURE PILL [Concomitant]
     Indication: BLOOD PRESSURE
     Route: 048
  4. CHOLESTEROL PILL [Concomitant]
     Indication: BLOOD CHOLESTEROL
     Route: 048
  5. WATER PILL [Concomitant]
     Indication: BLOOD PRESSURE
     Route: 048
  6. HYDROXYCHLOROQUINE [Concomitant]
     Indication: PSORIATIC ARTHROPATHY
     Route: 048
  7. CLONAZEPAM [Concomitant]
     Indication: ANXIETY
     Route: 048
  8. PROPOXY [Concomitant]
     Indication: PAIN
     Route: 048

REACTIONS (2)
  - RASH PAPULAR [None]
  - RASH PRURITIC [None]
